FAERS Safety Report 5006051-0 (Version None)
Quarter: 2006Q1

REPORT INFORMATION
  Report Type: 
  Country: None (occurrence: None)
  Receive Date: 20060328
  Receipt Date: 20050419
  Transmission Date: 20060701
  Serious: Yes (Other)
  Sender: FDA-Public Use
  Company Number: 17952

PATIENT
  Age: 53 Year
  Sex: Female
  Weight: 59.8748 kg

DRUGS (7)
  1. ADRIAMYCIN (DOXORUBICIN) INJ. USP 10MG/5ML [Suspect]
     Indication: BREAST CANCER
     Dates: start: 20021019, end: 20021212
  2. TAXOTERE [Concomitant]
  3. BELADONN/OPIUM SUPPOSIITORIES [Concomitant]
  4. DITROPAN XL 10MG PO QD [Concomitant]
  5. ELAVIL 75 MG PO QD [Concomitant]
  6. QESTRAM [Concomitant]
  7. ARIMEDEX 1 MG PO QD [Concomitant]

REACTIONS (2)
  - ALOPECIA [None]
  - HAEMORRHAGE [None]
